FAERS Safety Report 25210540 (Version 2)
Quarter: 2025Q2

REPORT INFORMATION
  Report Type: Spontaneous
  Country: US (occurrence: US)
  Receive Date: 20250417
  Receipt Date: 20250508
  Transmission Date: 20250717
  Serious: Yes (Other)
  Sender: PFIZER
  Company Number: US-PFIZER INC-202500075454

PATIENT
  Age: 64 Year
  Sex: Female

DRUGS (5)
  1. IBRANCE [Suspect]
     Active Substance: PALBOCICLIB
     Route: 048
     Dates: start: 20250303, end: 202505
  2. ATORVASTATIN [Concomitant]
     Active Substance: ATORVASTATIN
  3. CALCIUM\VITAMIN D [Concomitant]
     Active Substance: CALCIUM\VITAMIN D
  4. EXEMESTANE [Concomitant]
     Active Substance: EXEMESTANE
  5. VALSARTAN [Concomitant]
     Active Substance: VALSARTAN

REACTIONS (2)
  - Malignant neoplasm progression [Unknown]
  - Nausea [Unknown]

NARRATIVE: CASE EVENT DATE: 20250101
